FAERS Safety Report 19562551 (Version 5)
Quarter: 2025Q1

REPORT INFORMATION
  Report Type: Spontaneous
  Country: JP (occurrence: JP)
  Receive Date: 20210716
  Receipt Date: 20250121
  Transmission Date: 20250409
  Serious: Yes (Disabling, Other)
  Sender: NOVARTIS
  Company Number: NVSJ2021JP010743

PATIENT
  Age: 75 Year
  Sex: Male

DRUGS (1)
  1. BEOVU [Suspect]
     Active Substance: BROLUCIZUMAB-DBLL
     Indication: Age-related macular degeneration
     Route: 031
     Dates: start: 20210410, end: 20210410

REACTIONS (12)
  - Glaucoma [Recovering/Resolving]
  - Intraocular pressure increased [Recovering/Resolving]
  - Uveitis [Recovering/Resolving]
  - Ocular hyperaemia [Recovering/Resolving]
  - Blindness [Unknown]
  - Eye pain [Recovering/Resolving]
  - Anterior chamber inflammation [Unknown]
  - Vitreous opacities [Unknown]
  - Retinal vasculitis [Recovering/Resolving]
  - Retinal degeneration [Unknown]
  - Borderline glaucoma [Unknown]
  - Retinal perivascular sheathing [Recovering/Resolving]

NARRATIVE: CASE EVENT DATE: 20210506
